FAERS Safety Report 24534229 (Version 1)
Quarter: 2024Q4

REPORT INFORMATION
  Report Type: Spontaneous
  Country: US (occurrence: None)
  Receive Date: 20241022
  Receipt Date: 20241022
  Transmission Date: 20250115
  Serious: Yes (Hospitalization)
  Sender: Public
  Company Number: None

PATIENT
  Age: 967 Year
  Sex: Female
  Weight: 63.5 kg

DRUGS (1)
  1. CYTARABINE [Suspect]
     Active Substance: CYTARABINE
     Dates: end: 20240725

REACTIONS (4)
  - Platelet transfusion [None]
  - Transfusion reaction [None]
  - Bacterial infection [None]
  - Blood lactic acid decreased [None]

NARRATIVE: CASE EVENT DATE: 20240806
